FAERS Safety Report 8123726-5 (Version None)
Quarter: 2012Q1

REPORT INFORMATION
  Report Type: 
  Country: None (occurrence: None)
  Receive Date: 20120208
  Receipt Date: 20120202
  Transmission Date: 20120608
  Serious: Yes (Other)
  Sender: FDA-Public Use
  Company Number: US-ABBOTT-12P-163-0898495-00

PATIENT
  Sex: Female
  Weight: 61.29 kg

DRUGS (16)
  1. LASIX [Concomitant]
     Indication: OEDEMA PERIPHERAL
  2. POTASSIUM [Concomitant]
     Indication: PRODUCT USED FOR UNKNOWN INDICATION
  3. MAGNESIUM [Concomitant]
     Indication: PRODUCT USED FOR UNKNOWN INDICATION
  4. PRAVACHOL [Concomitant]
     Indication: BLOOD CHOLESTEROL INCREASED
  5. LASIX [Concomitant]
     Indication: JOINT SWELLING
  6. ARMODAFINIL [Concomitant]
     Indication: FUNGAL INFECTION
  7. FOLIC ACID [Concomitant]
     Indication: PRODUCT USED FOR UNKNOWN INDICATION
  8. HUMIRA [Suspect]
     Indication: PSORIATIC ARTHROPATHY
     Dates: start: 20120109
  9. AMARYL [Concomitant]
     Indication: TYPE 2 DIABETES MELLITUS
  10. ARMODAFINIL [Concomitant]
     Indication: PROPHYLAXIS
  11. PERCOCET [Concomitant]
     Indication: ARTHRALGIA
  12. METFORMIN HCL [Concomitant]
     Indication: TYPE 2 DIABETES MELLITUS
  13. ZOVIRAX [Concomitant]
     Indication: PRODUCT USED FOR UNKNOWN INDICATION
  14. ZAROXOLYN [Concomitant]
     Indication: FLUID RETENTION
  15. METHOTREXATE [Concomitant]
     Indication: PSORIASIS
     Dosage: INJECTION
  16. METHOTREXATE [Concomitant]
     Indication: PSORIATIC ARTHROPATHY

REACTIONS (3)
  - INJECTION SITE PAIN [None]
  - OESOPHAGEAL STENOSIS [None]
  - FOREIGN BODY [None]
